FAERS Safety Report 5273662-7 (Version None)
Quarter: 2007Q1

REPORT INFORMATION
  Report Type: 
  Country: None (occurrence: None)
  Receive Date: 20061219
  Receipt Date: 20060928
  Transmission Date: 20070707
  Serious: Yes (Other)
  Sender: FDA-Public Use
  Company Number: US-JNJFOC-20061000728

PATIENT
  Age: 52 Year
  Sex: Female
  Weight: 64.4108 kg

DRUGS (5)
  1. ORTHO EVRA [Suspect]
     Indication: MENSTRUATION IRREGULAR
     Dosage: SEE IMAGE
     Dates: end: 20050824
  2. ASPIRIN [Concomitant]
  3. VICODIN [Concomitant]
  4. SYNTHROID [Concomitant]
  5. ALREX (LOTEPREDNOL ETABONATE) [Concomitant]

REACTIONS (3)
  - METRORRHAGIA [None]
  - PULMONARY EMBOLISM [None]
  - WEIGHT DECREASED [None]
